FAERS Safety Report 13918454 (Version 1)
Quarter: 2017Q3

REPORT INFORMATION
  Report Type: Spontaneous
  Country: US (occurrence: US)
  Receive Date: 20170829
  Receipt Date: 20170829
  Transmission Date: 20171127
  Serious: Yes (Other)
  Sender: FDA-Public Use
  Company Number: US-ACTELION-A-NJ2017-158609

PATIENT
  Age: 86 Year
  Sex: Female

DRUGS (38)
  1. OPSUMIT [Suspect]
     Active Substance: MACITENTAN
     Indication: PULMONARY ARTERIAL HYPERTENSION
     Dosage: 10 MG, QD
     Route: 048
     Dates: start: 20170727
  2. MONTELUKAST [Concomitant]
     Active Substance: MONTELUKAST SODIUM
  3. CALCITRIOL. [Concomitant]
     Active Substance: CALCITRIOL
  4. METOPROLOL. [Concomitant]
     Active Substance: METOPROLOL
  5. ASPIRIN. [Concomitant]
     Active Substance: ASPIRIN
  6. PROBIOTIC [Concomitant]
     Active Substance: PROBIOTICS NOS
  7. JANUVIA [Concomitant]
     Active Substance: SITAGLIPTIN PHOSPHATE
  8. WELCHOL [Concomitant]
     Active Substance: COLESEVELAM HYDROCHLORIDE
  9. VITAMIN D3 [Concomitant]
     Active Substance: CHOLECALCIFEROL
  10. OMEGA 3 [Concomitant]
     Active Substance: OMEGA-3 FATTY ACIDS
  11. ESCITALOPRAM [Concomitant]
     Active Substance: ESCITALOPRAM OXALATE
  12. ACCUPRIL [Concomitant]
     Active Substance: QUINAPRIL HYDROCHLORIDE
  13. ORENITRAM [Concomitant]
     Active Substance: TREPROSTINIL
  14. PRESERVISION [Concomitant]
     Active Substance: MINERALS\VITAMINS
  15. CRANBERRY. [Concomitant]
     Active Substance: CRANBERRY
  16. CRESTOR [Concomitant]
     Active Substance: ROSUVASTATIN CALCIUM
  17. URISED [Concomitant]
     Active Substance: ATROPINE\BENZOIC ACID\GELSEMIUM SEMPERVIRENS ROOT\HYOSCYAMINE\METHENAMINE\METHYLENE BLUE ANHYDROUS\PHENYL SALICYLATE
  18. LOVAZA [Concomitant]
     Active Substance: OMEGA-3-ACID ETHYL ESTERS
  19. PANTOPRAZOLE [Concomitant]
     Active Substance: PANTOPRAZOLE
  20. PROTONIX [Concomitant]
     Active Substance: PANTOPRAZOLE SODIUM
  21. BREO ELLIPTA [Concomitant]
     Active Substance: FLUTICASONE FUROATE\VILANTEROL TRIFENATATE
  22. NISOLDIPINE. [Concomitant]
     Active Substance: NISOLDIPINE
  23. XYZAL [Concomitant]
     Active Substance: LEVOCETIRIZINE DIHYDROCHLORIDE
  24. VITAMIN B12 [Concomitant]
     Active Substance: CYANOCOBALAMIN
  25. SINGULAIR [Concomitant]
     Active Substance: MONTELUKAST SODIUM
  26. COUMADIN [Concomitant]
     Active Substance: WARFARIN SODIUM
  27. QUINAPRIL. [Concomitant]
     Active Substance: QUINAPRIL
  28. MAGNESIUM [Concomitant]
     Active Substance: MAGNESIUM
  29. LEVOCETIRIZINE [Concomitant]
     Active Substance: LEVOCETIRIZINE
  30. SOTALOL. [Concomitant]
     Active Substance: SOTALOL
  31. XOPENEX [Concomitant]
     Active Substance: LEVALBUTEROL HYDROCHLORIDE
  32. TOPROL XL [Concomitant]
     Active Substance: METOPROLOL SUCCINATE
  33. LATANOPROST. [Concomitant]
     Active Substance: LATANOPROST
  34. LORAZEPAM. [Concomitant]
     Active Substance: LORAZEPAM
  35. VITAMIN C [Concomitant]
     Active Substance: ASCORBIC ACID
  36. UROCIT K [Concomitant]
  37. FLUTICASONE. [Concomitant]
     Active Substance: FLUTICASONE
  38. FUROSEMIDE. [Concomitant]
     Active Substance: FUROSEMIDE

REACTIONS (1)
  - Internal haemorrhage [Not Recovered/Not Resolved]
